FAERS Safety Report 11641498 (Version 2)
Quarter: 2015Q4

REPORT INFORMATION
  Report Type: Other
  Country: TR (occurrence: TR)
  Receive Date: 20151019
  Receipt Date: 20151104
  Transmission Date: 20160304
  Serious: Yes (Hospitalization, Other)
  Sender: FDA-Public Use
  Company Number: TR-DEP_12843_2015

PATIENT
  Age: 33 Year
  Sex: Male

DRUGS (7)
  1. GABAPENTIN. [Suspect]
     Active Substance: GABAPENTIN
     Indication: SEIZURE
     Dosage: DF, FURTHER TAPERED AND DISCONTINUED
  2. CARBAMAZEPINE. [Concomitant]
     Active Substance: CARBAMAZEPINE
     Indication: SEIZURE
  3. GABAPENTIN. [Suspect]
     Active Substance: GABAPENTIN
     Dosage: DF, AFTERNOON DOSE DISCONTINUED
  4. ANTITUBERCULOSIS THERAPY [Concomitant]
     Indication: DISSEMINATED TUBERCULOSIS
     Dosage: DF
  5. ANTITUBERCULOSIS THERAPY [Concomitant]
     Dosage: DF
  6. GABAPENTIN. [Suspect]
     Active Substance: GABAPENTIN
  7. CARBAMAZEPINE. [Concomitant]
     Active Substance: CARBAMAZEPINE

REACTIONS (2)
  - Disseminated tuberculosis [Unknown]
  - Thrombocytopenia [Recovering/Resolving]
